FAERS Safety Report 7585460-X (Version None)
Quarter: 2011Q3

REPORT INFORMATION
  Report Type: 
  Country: None (occurrence: None)
  Receive Date: 20110701
  Receipt Date: 20110616
  Transmission Date: 20111222
  Serious: Yes (Hospitalization)
  Sender: FDA-Public Use
  Company Number: US-BAYER-2010-008614

PATIENT
  Age: 57 Year
  Sex: Female

DRUGS (9)
  1. ANTIHYPERTENSIVES [Suspect]
  2. METFORMIN HCL [Concomitant]
     Dosage: 500 MG, BID
  3. PRAVASTATIN [Concomitant]
  4. LISINOPRIL [Concomitant]
  5. SYNTHROID [Concomitant]
     Dosage: 0.25 MG, QD
  6. NEXAVAR [Suspect]
     Dosage: 200 MG, BID
     Route: 048
     Dates: start: 20110107
  7. NEXAVAR [Suspect]
     Indication: RENAL CELL CARCINOMA
     Dosage: 400 MG, BID
     Dates: start: 20101217, end: 20101227
  8. TRAMADOL HCL [Concomitant]
     Dosage: 50 MG, Q4HR, PRN
  9. M.V.I. [Concomitant]

REACTIONS (17)
  - FATIGUE [None]
  - PAIN [None]
  - FLUSHING [None]
  - PRODUCTIVE COUGH [None]
  - BLOOD PRESSURE INCREASED [None]
  - ORAL PAIN [None]
  - PRURITUS [None]
  - OEDEMA PERIPHERAL [None]
  - NAUSEA [None]
  - CHILLS [None]
  - HYPOALBUMINAEMIA [None]
  - ALOPECIA [None]
  - SKIN EXFOLIATION [None]
  - VOMITING [None]
  - CONSTIPATION [None]
  - BLOOD GLUCOSE INCREASED [None]
  - RASH GENERALISED [None]
